FAERS Safety Report 5239759-2 (Version None)
Quarter: 2007Q1

REPORT INFORMATION
  Report Type: 
  Country: None (occurrence: None)
  Receive Date: 20070216
  Receipt Date: 20070207
  Transmission Date: 20070707
  Serious: Yes (Death, Hospitalization)
  Sender: FDA-Public Use
  Company Number: AT-ELI_LILLY_AND_COMPANY-AT200702001529

PATIENT
  Sex: Male

DRUGS (2)
  1. XIGRIS [Suspect]
     Indication: SEPSIS
     Dates: start: 20070101
  2. ANTITHROMBIN III [Concomitant]
     Indication: SEPSIS
     Dates: start: 20070101

REACTIONS (1)
  - HAEMORRHAGE INTRACRANIAL [None]
